FAERS Safety Report 6633056-6 (Version None)
Quarter: 2010Q1

REPORT INFORMATION
  Report Type: 
  Country: None (occurrence: None)
  Receive Date: 20100312
  Receipt Date: 20100301
  Transmission Date: 20100710
  Serious: Yes (Other)
  Sender: FDA-Public Use
  Company Number: PHHY2010DE11998

PATIENT
  Age: 57 Year
  Sex: Female

DRUGS (1)
  1. RASILEZ [Suspect]
     Dosage: 1 DF, QD
     Route: 065
     Dates: start: 20080101

REACTIONS (3)
  - BLOOD POTASSIUM DECREASED [None]
  - GLOMERULAR FILTRATION RATE DECREASED [None]
  - MUSCLE SPASMS [None]
